FAERS Safety Report 6792893-8 (Version None)
Quarter: 2010Q2

REPORT INFORMATION
  Report Type: 
  Country: None (occurrence: None)
  Receive Date: 20100624
  Receipt Date: 20081209
  Transmission Date: 20101027
  Serious: No
  Sender: FDA-Public Use
  Company Number: US-PFIZER INC-2008088515

PATIENT
  Sex: Male

DRUGS (16)
  1. XALATAN [Suspect]
     Indication: LACRIMATION INCREASED
     Dosage: 1 GTT, 1X/DAY
  2. DOCUSATE [Concomitant]
  3. DEPAKOTE [Concomitant]
  4. NORVASC [Concomitant]
  5. BENZTROPINE MESYLATE [Concomitant]
  6. DAILY VITAMINS [Concomitant]
  7. SIMETHICONE [Concomitant]
  8. ALL OTHER THERAPEUTIC PRODUCTS [Concomitant]
  9. SEROQUEL [Concomitant]
  10. COUGH AND COLD PREPARATIONS [Concomitant]
  11. CLOTRIMAZOLE [Concomitant]
  12. AMMONIUM LACTATE [Concomitant]
  13. ALL OTHER THERAPEUTIC PRODUCTS [Concomitant]
  14. ANTACID TAB [Concomitant]
  15. COSOPT [Concomitant]
  16. BRIMONIDINE TARTRATE [Concomitant]

REACTIONS (2)
  - DRUG INEFFECTIVE FOR UNAPPROVED INDICATION [None]
  - EYE INFECTION [None]
